FAERS Safety Report 7269991-8 (Version None)
Quarter: 2011Q1

REPORT INFORMATION
  Report Type: 
  Country: None (occurrence: None)
  Receive Date: 20110202
  Receipt Date: 20110125
  Transmission Date: 20110831
  Serious: Yes (Hospitalization)
  Sender: FDA-Public Use
  Company Number: JP-ROCHE-753449

PATIENT
  Sex: Male
  Weight: 94 kg

DRUGS (19)
  1. ACTEMRA [Suspect]
     Route: 041
     Dates: start: 20091111, end: 20091111
  2. PREDNISOLONE [Concomitant]
     Route: 048
     Dates: start: 20091112, end: 20091209
  3. PREDNISOLONE [Concomitant]
     Route: 048
     Dates: start: 20100107, end: 20100203
  4. PREDNISOLONE [Concomitant]
     Route: 048
     Dates: start: 20091210, end: 20100106
  5. NEUROTROPIN [Concomitant]
     Route: 048
     Dates: start: 20090428
  6. ACTEMRA [Suspect]
     Route: 041
     Dates: start: 20091014, end: 20091014
  7. ACTEMRA [Suspect]
     Route: 041
     Dates: start: 20091209, end: 20091209
  8. AZULFIDINE [Suspect]
     Indication: RHEUMATOID ARTHRITIS
     Dosage: DOSAGE FORM ENTERIC COATING
     Route: 048
     Dates: start: 20090513, end: 20110111
  9. ISCOTIN [Concomitant]
     Route: 048
     Dates: start: 20090805
  10. MOBIC [Concomitant]
     Route: 048
     Dates: start: 20090428
  11. ACTEMRA [Suspect]
     Indication: RHEUMATOID ARTHRITIS
     Route: 041
     Dates: start: 20090818, end: 20090818
  12. ACTEMRA [Suspect]
     Route: 041
     Dates: start: 20090915, end: 20090915
  13. ACTEMRA [Suspect]
     Route: 041
     Dates: start: 20100203, end: 20110111
  14. PREDNISOLONE [Concomitant]
     Route: 048
     Dates: start: 20090916, end: 20091014
  15. PREDNISOLONE [Concomitant]
     Dosage: DOSAGE FORM : PERORAL AGENT
     Route: 048
     Dates: end: 20090915
  16. PREDNISOLONE [Concomitant]
     Route: 048
     Dates: start: 20091015, end: 20091111
  17. ACTEMRA [Suspect]
     Route: 041
     Dates: start: 20090106, end: 20090106
  18. PREDNISOLONE [Concomitant]
     Route: 048
     Dates: start: 20100204
  19. MUCOSTA [Concomitant]
     Dosage: DOSAGE FORM : PERORAL AGENT
     Route: 048
     Dates: start: 20090513

REACTIONS (1)
  - INTERSTITIAL LUNG DISEASE [None]
